FAERS Safety Report 6782808-0 (Version None)
Quarter: 2010Q2

REPORT INFORMATION
  Report Type: 
  Country: None (occurrence: None)
  Receive Date: 20100616
  Receipt Date: 20090929
  Transmission Date: 20101027
  Serious: No
  Sender: FDA-Public Use
  Company Number: MSTR-NO-0809S-0063

PATIENT
  Age: 73 Year
  Sex: Female
  Weight: 33 kg

DRUGS (1)
  1. METASTRON [Suspect]
     Indication: METASTASES TO BONE
     Dosage: 67 MBQ, SINGLE DOSE, I.V.
     Route: 042
     Dates: start: 20080527, end: 20080527

REACTIONS (3)
  - LUNG CANCER METASTATIC [None]
  - PYREXIA [None]
  - RESPIRATORY FAILURE [None]
